FAERS Safety Report 22597504 (Version 1)
Quarter: 2023Q2

REPORT INFORMATION
  Report Type: Spontaneous
  Country: US (occurrence: US)
  Receive Date: 20230614
  Receipt Date: 20230614
  Transmission Date: 20230721
  Serious: No
  Sender: FDA-Public Use
  Company Number: US-ENDO PHARMACEUTICALS INC-2023-000910

PATIENT
  Sex: Male

DRUGS (6)
  1. SUPPRELIN LA [Suspect]
     Active Substance: HISTRELIN ACETATE
     Indication: Precocious puberty
     Dosage: UNK UNKNOWN, UNKNOWN (SECOND IMPLANT)
     Route: 065
  2. SUPPRELIN LA [Suspect]
     Active Substance: HISTRELIN ACETATE
     Indication: Precocious puberty
     Dosage: UNK UNKNOWN, UNKNOWN (SECOND IMPLANT)
     Route: 065
  3. SUPPRELIN LA [Suspect]
     Active Substance: HISTRELIN ACETATE
     Indication: Gender dysphoria
     Dosage: UNK UNKNOWN, UNKNOWN (MOST RECENT)
     Route: 065
     Dates: start: 20230130
  4. SUPPRELIN LA [Suspect]
     Active Substance: HISTRELIN ACETATE
     Indication: Gender dysphoria
     Dosage: UNK UNKNOWN, UNKNOWN (MOST RECENT)
     Route: 065
     Dates: start: 20230130
  5. SUPPRELIN LA [Suspect]
     Active Substance: HISTRELIN ACETATE
     Dosage: UNK UNKNOWN, UNKNOWN (FIRST IMPLANT)
     Route: 065
     Dates: start: 202010
  6. SUPPRELIN LA [Suspect]
     Active Substance: HISTRELIN ACETATE
     Dosage: UNK UNKNOWN, UNKNOWN (FIRST IMPLANT)
     Route: 065
     Dates: start: 202010

REACTIONS (6)
  - Abdominal pain upper [Unknown]
  - Headache [Recovering/Resolving]
  - Complication of device removal [Recovered/Resolved]
  - Wrong technique in product usage process [Unknown]
  - Incorrect product administration duration [Unknown]
  - Device breakage [None]

NARRATIVE: CASE EVENT DATE: 20221001
